FAERS Safety Report 8000046-0 (Version None)
Quarter: 2011Q4

REPORT INFORMATION
  Report Type: 
  Country: None (occurrence: None)
  Receive Date: 20111222
  Receipt Date: 20081015
  Transmission Date: 20120403
  Serious: No
  Sender: FDA-Public Use
  Company Number: 2008BI027630

PATIENT
  Age: 30 Year
  Sex: Female

DRUGS (2)
  1. TYSABRI [Suspect]
     Indication: MULTIPLE SCLEROSIS
     Route: 042
     Dates: start: 20041220
  2. TYSABRI [Suspect]
     Route: 042
     Dates: start: 20080825, end: 20080825

REACTIONS (1)
  - HYPERSENSITIVITY [None]
